FAERS Safety Report 21571343 (Version 1)
Quarter: 2022Q4

REPORT INFORMATION
  Report Type: Spontaneous
  Country: US (occurrence: None)
  Receive Date: 20221107
  Receipt Date: 20221107
  Transmission Date: 20230112
  Serious: Yes (Hospitalization)
  Sender: FDA-Public Use
  Company Number: None

PATIENT
  Age: 76 Year
  Sex: Male
  Weight: 73.48 kg

DRUGS (1)
  1. NITROGLYCERIN [Suspect]
     Active Substance: NITROGLYCERIN
     Indication: Chest pain
     Dates: start: 19990212

REACTIONS (3)
  - Accidental overdose [None]
  - Syncope [None]
  - Suicidal ideation [None]

NARRATIVE: CASE EVENT DATE: 20220826
